FAERS Safety Report 6432637-2 (Version None)
Quarter: 2009Q4

REPORT INFORMATION
  Report Type: 
  Country: None (occurrence: None)
  Receive Date: 20091109
  Receipt Date: 20091102
  Transmission Date: 20100525
  Serious: Yes (Hospitalization, Other)
  Sender: FDA-Public Use
  Company Number: US-ELI_LILLY_AND_COMPANY-US200911000444

PATIENT
  Age: 82 Year
  Sex: Female

DRUGS (2)
  1. HUMULIN 70/30 [Suspect]
     Dosage: 32 U, EACH MORNING
     Dates: start: 19890101
  2. HUMULIN 70/30 [Suspect]
     Dosage: 22 U, EACH EVENING
     Dates: start: 19890101

REACTIONS (2)
  - BLOOD GLUCOSE DECREASED [None]
  - CAROTID ARTERY OCCLUSION [None]
